FAERS Safety Report 6811826-9 (Version None)
Quarter: 2010Q2

REPORT INFORMATION
  Report Type: 
  Country: None (occurrence: None)
  Receive Date: 20100628
  Receipt Date: 20100617
  Transmission Date: 20101027
  Serious: Yes (Life-Threatening, Hospitalization, Other)
  Sender: FDA-Public Use
  Company Number: 7008244

PATIENT
  Sex: Female

DRUGS (1)
  1. LEVOTHYROXINE SODIUM [Suspect]
     Indication: THYROID THERAPY
     Dosage: 225 MCG; TRANSPLACENTAL
     Route: 064

REACTIONS (8)
  - CARDIAC FAILURE [None]
  - CARDIOMEGALY [None]
  - CONGENITAL HYPERTHYROIDISM [None]
  - DRUG EXPOSURE DURING PREGNANCY [None]
  - HYPERTHYROIDISM [None]
  - PREMATURE BABY [None]
  - SINUS TACHYCARDIA [None]
  - TRICUSPID VALVE INCOMPETENCE [None]
